FAERS Safety Report 6226079-2 (Version None)
Quarter: 2009Q2

REPORT INFORMATION
  Report Type: 
  Country: None (occurrence: None)
  Receive Date: 20090612
  Receipt Date: 20090507
  Transmission Date: 20091009
  Serious: No
  Sender: FDA-Public Use
  Company Number: US-ABBOTT-09P-163-0572127-00

PATIENT
  Sex: Female
  Weight: 75.818 kg

DRUGS (2)
  1. HUMIRA [Suspect]
     Indication: RHEUMATOID ARTHRITIS
     Dates: start: 20090505
  2. HUMIRA [Suspect]
     Indication: PSORIASIS

REACTIONS (3)
  - DIZZINESS [None]
  - HEADACHE [None]
  - INJECTION SITE PAIN [None]
